FAERS Safety Report 7159179-3 (Version None)
Quarter: 2010Q4

REPORT INFORMATION
  Report Type: 
  Country: None (occurrence: None)
  Receive Date: 20101214
  Receipt Date: 20101206
  Transmission Date: 20110411
  Serious: Yes (Disabling)
  Sender: FDA-Public Use
  Company Number: FR-PFIZER INC-2010142295

PATIENT
  Age: 46 Year
  Sex: Male
  Weight: 63 kg

DRUGS (6)
  1. LYRICA [Suspect]
     Indication: PAIN
     Dosage: 150 MG IN THE MORNING, 100MG IN THE EVENING
     Dates: start: 20090801
  2. LYRICA [Suspect]
     Indication: INJURY
  3. LYRICA [Suspect]
     Indication: SCIATICA
  4. TRAMADOL [Concomitant]
     Indication: PAIN
     Dosage: 150 MG, 1X/DAY
     Route: 048
     Dates: start: 20090808
  5. DAFALGAN [Concomitant]
     Indication: PAIN
     Dosage: 500 MG, 4X/DAY
     Route: 048
     Dates: start: 20090808
  6. NOCTAMID [Concomitant]
     Indication: INSOMNIA
     Dosage: 2 MG, 1X/DAY
     Route: 048
     Dates: start: 20100501

REACTIONS (3)
  - COLOUR BLINDNESS ACQUIRED [None]
  - INSOMNIA [None]
  - VISUAL ACUITY REDUCED [None]
